FAERS Safety Report 4682969-3 (Version None)
Quarter: 2005Q2

REPORT INFORMATION
  Report Type: 
  Country: None (occurrence: None)
  Receive Date: 20050602
  Receipt Date: 20050208
  Transmission Date: 20051028
  Serious: No
  Sender: FDA-Public Use
  Company Number: USA050290279

PATIENT
  Age: 30 Year
  Sex: Female

DRUGS (2)
  1. CYMBALTA [Suspect]
     Indication: DEPRESSION
     Dosage: 30 MG DAY
     Dates: start: 20050207
  2. WELLBUTRIN [Concomitant]

REACTIONS (6)
  - ASTHENOPIA [None]
  - EXCITABILITY [None]
  - INSOMNIA [None]
  - MYDRIASIS [None]
  - PAIN IN JAW [None]
  - YAWNING [None]
